FAERS Safety Report 20165126 (Version 1)
Quarter: 2021Q4

REPORT INFORMATION
  Report Type: Spontaneous
  Country: US (occurrence: US)
  Receive Date: 20211209
  Receipt Date: 20211209
  Transmission Date: 20220303
  Serious: Yes (Other)
  Sender: FDA-Public Use
  Company Number: US-ASTELLAS-2021US046942

PATIENT
  Age: 52 Year
  Sex: Male

DRUGS (4)
  1. LEXISCAN [Suspect]
     Active Substance: REGADENOSON
     Indication: Cardiac stress test
     Dosage: 0.4 MG/5 ML (0.08 MG/ML), UNKNOWN FREQ.
     Route: 042
  2. LEXISCAN [Suspect]
     Active Substance: REGADENOSON
     Indication: Cardiac stress test
     Dosage: 0.4 MG/5 ML (0.08 MG/ML), UNKNOWN FREQ.
     Route: 042
  3. LEXISCAN [Suspect]
     Active Substance: REGADENOSON
     Indication: Cardiac stress test
     Dosage: 0.4 MG/5 ML (0.08 MG/ML), UNKNOWN FREQ.
     Route: 042
  4. LEXISCAN [Suspect]
     Active Substance: REGADENOSON
     Indication: Cardiac stress test
     Dosage: 0.4 MG/5 ML (0.08 MG/ML), UNKNOWN FREQ.
     Route: 042

REACTIONS (8)
  - Pneumonia [Unknown]
  - Injection site pain [Unknown]
  - Injection site irritation [Unknown]
  - Abscess [Unknown]
  - Nodule [Unknown]
  - Anaemia [Not Recovered/Not Resolved]
  - Full blood count abnormal [Unknown]
  - Administration site extravasation [Unknown]
